FAERS Safety Report 16179998 (Version 1)
Quarter: 2019Q2

REPORT INFORMATION
  Report Type: Spontaneous
  Country: FR (occurrence: FR)
  Receive Date: 20190410
  Receipt Date: 20190410
  Transmission Date: 20190711
  Serious: Yes (Other)
  Sender: FDA-Public Use
  Company Number: PHHY2019FR079025

PATIENT
  Age: 74 Year
  Sex: Female

DRUGS (3)
  1. LOSARTAN. [Suspect]
     Active Substance: LOSARTAN
     Indication: PRODUCT USED FOR UNKNOWN INDICATION
     Dosage: DOSE DECREASED
     Route: 065
  2. GLECAPREVIR [Interacting]
     Active Substance: GLECAPREVIR
     Indication: HEPATITIS C
     Dosage: UNK
     Route: 065
  3. PIBRENTASVIR [Interacting]
     Active Substance: PIBRENTASVIR
     Indication: HEPATITIS C
     Route: 065

REACTIONS (2)
  - Potentiating drug interaction [Unknown]
  - Syncope [Unknown]

NARRATIVE: CASE EVENT DATE: 201903
